FAERS Safety Report 7044326 (Version 3)
Quarter: 2012Q4

REPORT INFORMATION
  Report Type: Report from Study
  Country: US (occurrence: US)
  Receive Date: 20090708
  Receipt Date: 20121213
  Transmission Date: 20130627
  Serious: Yes (Hospitalization)
  Sender: FDA-Public Use
  Company Number: US-JNJFOC-20090700531

PATIENT
  Age: 17 Year
  Sex: Male
  Weight: 60.5 kg

DRUGS (5)
  1. INFLIXIMAB [Suspect]
     Indication: CROHN^S DISEASE
     Route: 042
     Dates: start: 20090209
  2. CORTICOSTEROIDS [Concomitant]
     Indication: INFLAMMATORY BOWEL DISEASE
  3. 6 MERCAPTOPURINE [Concomitant]
     Indication: INFLAMMATORY BOWEL DISEASE
     Dosage: }2, {=3 years
  4. ANTIHISTAMINES [Concomitant]
     Indication: PREMEDICATION
  5. ACETAMINOPHEN [Concomitant]
     Indication: PREMEDICATION

REACTIONS (2)
  - Pelvic abscess [Recovered/Resolved with Sequelae]
  - Enterovesical fistula [Recovered/Resolved]
